FAERS Safety Report 6469976-5 (Version None)
Quarter: 2009Q4

REPORT INFORMATION
  Report Type: 
  Country: None (occurrence: None)
  Receive Date: 20091203
  Receipt Date: 20080319
  Transmission Date: 20100525
  Serious: Yes (Hospitalization)
  Sender: FDA-Public Use
  Company Number: US-ELI_LILLY_AND_COMPANY-US200712003955

PATIENT
  Age: 63 Year
  Sex: Female
  Weight: 82.086 kg

DRUGS (5)
  1. BYETTA [Suspect]
     Indication: HYPERGLYCAEMIA
     Dosage: 5 UG, 2/D
     Route: 065
     Dates: start: 20070401, end: 20070501
  2. BYETTA [Suspect]
     Dosage: 10 UG, 2/D
     Route: 065
     Dates: start: 20070501, end: 20070101
  3. BYETTA [Suspect]
     Dosage: 5 UG, UNKNOWN
     Route: 058
     Dates: start: 20080220
  4. LANTUS [Concomitant]
     Indication: HYPERGLYCAEMIA
  5. COUMADIN [Concomitant]
     Indication: AORTIC VALVE REPLACEMENT
     Dosage: UNK, UNKNOWN

REACTIONS (5)
  - HYPOGLYCAEMIA [None]
  - NAUSEA [None]
  - PANCREATITIS [None]
  - VOMITING [None]
  - WEIGHT DECREASED [None]
